FAERS Safety Report 4876414-2 (Version None)
Quarter: 2005Q4

REPORT INFORMATION
  Report Type: 
  Country: None (occurrence: None)
  Receive Date: 20051206
  Receipt Date: 20051101
  Transmission Date: 20060501
  Serious: Yes (Hospitalization)
  Sender: FDA-Public Use
  Company Number: USA0509109050

PATIENT
  Age: 28 Year
  Sex: Female
  Weight: 58 kg

DRUGS (5)
  1. CYMBALTA [Suspect]
     Indication: DEPRESSION
     Dosage: 60 MG
     Dates: start: 20050501, end: 20050703
  2. STRATTERA [Suspect]
     Indication: PAIN
     Dosage: 20 MG/TWICE DAY
     Dates: start: 20050922
  3. TRAMADOL HCL [Concomitant]
  4. NAPROXEN [Concomitant]
  5. TRILEPTAL [Concomitant]

REACTIONS (10)
  - ANXIETY [None]
  - BLOOD PRESSURE INCREASED [None]
  - CHEST PAIN [None]
  - INCONTINENCE [None]
  - INSOMNIA [None]
  - INTENTIONAL SELF-INJURY [None]
  - POLLAKIURIA [None]
  - SUICIDAL IDEATION [None]
  - TREMOR [None]
  - WEIGHT DECREASED [None]
